FAERS Safety Report 7465063-8 (Version None)
Quarter: 2011Q2

REPORT INFORMATION
  Report Type: 
  Country: None (occurrence: None)
  Receive Date: 20110509
  Receipt Date: 20110502
  Transmission Date: 20111010
  Serious: Yes (Other)
  Sender: FDA-Public Use
  Company Number: FR-TEVA-280457ISR

PATIENT
  Sex: Female

DRUGS (3)
  1. COPAXONE [Suspect]
     Indication: MULTIPLE SCLEROSIS
     Dosage: 10 MILLIGRAM;
     Route: 058
     Dates: start: 20110401, end: 20110401
  2. ANASTROZOLE [Concomitant]
     Indication: BREAST CANCER
  3. ENALAPRIL [Concomitant]
     Indication: HYPERTENSION

REACTIONS (2)
  - POSTERIOR REVERSIBLE ENCEPHALOPATHY SYNDROME [None]
  - INTENTIONAL DRUG MISUSE [None]
